FAERS Safety Report 4499867-0 (Version None)
Quarter: 2004Q4

REPORT INFORMATION
  Report Type: 
  Country: None (occurrence: None)
  Receive Date: 20041108
  Receipt Date: 20041025
  Transmission Date: 20050328
  Serious: Yes (Hospitalization)
  Sender: FDA-Public Use
  Company Number: 2004082943

PATIENT
  Age: 69 Year
  Sex: Male
  Weight: 76 kg

DRUGS (6)
  1. PHENYTOIN SODIUM [Suspect]
     Indication: ILL-DEFINED DISORDER
     Dosage: 600 MG, ORAL
     Route: 048
     Dates: start: 20040727, end: 20040815
  2. DEXAMETHASONE [Concomitant]
  3. PHENPROCOUMON (PHENPROCOUMON) [Concomitant]
  4. FERRUM HAUSMANN ^ASTA^ (FERROUS FUMARATE, SACCHARATED IRON OXIDE) [Concomitant]
  5. FLOXAL EYEDROPS (BENZALKONIUM CHLORIDE, OFLOXACIN) [Concomitant]
  6. DEXAMETHASONE [Concomitant]

REACTIONS (4)
  - ADENOVIRAL CONJUNCTIVITIS [None]
  - ANGIONEUROTIC OEDEMA [None]
  - STEVENS-JOHNSON SYNDROME [None]
  - SUPERINFECTION [None]
